FAERS Safety Report 25812777 (Version 1)
Quarter: 2025Q3

REPORT INFORMATION
  Report Type: Spontaneous
  Country: US (occurrence: US)
  Receive Date: 20250917
  Receipt Date: 20250917
  Transmission Date: 20251021
  Serious: No
  Sender: SANOFI AVENTIS
  Company Number: US-SA-2025SA276138

PATIENT
  Sex: Male
  Weight: 118.18 kg

DRUGS (1)
  1. DUPIXENT [Suspect]
     Active Substance: DUPILUMAB
     Indication: Nasal polyps
     Dosage: 300 MG, QOW
     Route: 058
     Dates: start: 202509

REACTIONS (4)
  - Nasopharyngitis [Recovered/Resolved]
  - Allergic respiratory symptom [Recovered/Resolved]
  - Chills [Recovered/Resolved]
  - Muscle fatigue [Recovered/Resolved]

NARRATIVE: CASE EVENT DATE: 20250901
